FAERS Safety Report 9994977 (Version 2)
Quarter: 2014Q2

REPORT INFORMATION
  Report Type: Spontaneous
  Country: US (occurrence: None)
  Receive Date: 20140306
  Receipt Date: 20140603
  Transmission Date: 20141212
  Serious: Yes (Other)
  Sender: FDA-Public Use
  Company Number: QR77755-02

PATIENT
  Age: 12 Year
  Sex: Female
  Weight: 60.7 kg

DRUGS (4)
  1. GAMMAPLEX [Suspect]
     Indication: IMMUNODEFICIENCY COMMON VARIABLE
     Route: 042
  2. CELEBREX [Concomitant]
  3. SYMBIORT [Concomitant]
  4. ALBUTEROL [Concomitant]

REACTIONS (3)
  - Migraine [None]
  - Pertussis [None]
  - Pneumonia mycoplasmal [None]
